FAERS Safety Report 7475512-7 (Version None)
Quarter: 2011Q2

REPORT INFORMATION
  Report Type: 
  Country: None (occurrence: None)
  Receive Date: 20110512
  Receipt Date: 20110504
  Transmission Date: 20111010
  Serious: Yes (Other)
  Sender: FDA-Public Use
  Company Number: PHEH2009US03481

PATIENT

DRUGS (4)
  1. MEDROXYPROGESTERONE ACETATE [Suspect]
     Dosage: UNK
     Dates: start: 19990101, end: 19990101
  2. PREMARIN [Suspect]
     Indication: HORMONE REPLACEMENT THERAPY
     Dosage: UNK
     Dates: start: 19950101, end: 19990101
  3. COMBIPATCH [Suspect]
     Indication: HORMONE REPLACEMENT THERAPY
     Dosage: UNK
     Route: 062
     Dates: start: 20010101
  4. PREMPRO [Suspect]
     Indication: HORMONE REPLACEMENT THERAPY
     Dosage: UNK
     Dates: start: 20010101, end: 20030101

REACTIONS (14)
  - ASTHMA [None]
  - BREAST CANCER [None]
  - HYPERLIPIDAEMIA [None]
  - INJURY [None]
  - BRONCHITIS [None]
  - HYPERPLASIA [None]
  - ANXIETY DISORDER [None]
  - RHEUMATOID ARTHRITIS [None]
  - BUNION [None]
  - VARICOSE VEIN [None]
  - DEPRESSION [None]
  - ALCOHOLISM [None]
  - BIPOLAR II DISORDER [None]
  - HYPERTENSION [None]
